FAERS Safety Report 6571786-5 (Version None)
Quarter: 2010Q1

REPORT INFORMATION
  Report Type: 
  Country: None (occurrence: None)
  Receive Date: 20100205
  Receipt Date: 20100126
  Transmission Date: 20100710
  Serious: Yes (Other)
  Sender: FDA-Public Use
  Company Number: CO-JNJFOC-20100200826

PATIENT
  Age: 55 Year
  Sex: Female

DRUGS (8)
  1. REMICADE [Suspect]
     Indication: RHEUMATOID ARTHRITIS
     Route: 042
  2. IRON [Concomitant]
  3. DICLOFENAC [Concomitant]
  4. ACETAMINOPHEN W/ CODEINE TAB [Concomitant]
  5. SULFASALAZINE [Concomitant]
  6. CALCIUM [Concomitant]
  7. VITAMIN B COMPLEX CAP [Concomitant]
  8. DEXAMETHASONE [Concomitant]
     Indication: PREMEDICATION

REACTIONS (7)
  - CHEST DISCOMFORT [None]
  - DYSPNOEA [None]
  - FLUSHING [None]
  - INFUSION RELATED REACTION [None]
  - MUSCULOSKELETAL PAIN [None]
  - OXYGEN SATURATION DECREASED [None]
  - PAIN IN EXTREMITY [None]
